FAERS Safety Report 4275814-1 (Version None)
Quarter: 2004Q1

REPORT INFORMATION
  Report Type: 
  Country: None (occurrence: None)
  Receive Date: 20040116
  Receipt Date: 20040107
  Transmission Date: 20041129
  Serious: Yes (Hospitalization)
  Sender: FDA-Public Use
  Company Number: US-JNJFOC-20040101225

PATIENT
  Age: 50 Year
  Sex: Male

DRUGS (4)
  1. INFLIXIMAB , RECOMBINANT - BLINDED (INFLIXIMAB RECOMBINANT) LYOPHILIZE [Suspect]
     Indication: COLITIS ULCERATIVE
     Dosage: INTRAVENOUS
     Route: 042
     Dates: start: 20031201
  2. INFLIXIMAB , RECOMBINANT - BLINDED (INFLIXIMAB RECOMBINANT) LYOPHILIZE [Suspect]
     Indication: COLITIS ULCERATIVE
     Dosage: INTRAVENOUS
     Route: 042
     Dates: start: 20031215
  3. PLACEBO (PLACEBO) LYOPHILIZED POWDER [Suspect]
     Indication: COLITIS ULCERATIVE
     Dosage: INTRAVENOUS
     Route: 042
     Dates: start: 20031201
  4. PLACEBO (PLACEBO) LYOPHILIZED POWDER [Suspect]
     Indication: COLITIS ULCERATIVE
     Dosage: INTRAVENOUS
     Route: 042
     Dates: start: 20031215

REACTIONS (9)
  - ABDOMINAL TENDERNESS [None]
  - COLITIS ULCERATIVE [None]
  - DEHYDRATION [None]
  - DIARRHOEA [None]
  - HAEMORRHOID OPERATION [None]
  - NAUSEA [None]
  - PROCTALGIA [None]
  - VIRAL INFECTION [None]
  - VOMITING [None]
